FAERS Safety Report 4513311-6 (Version None)
Quarter: 2004Q4

REPORT INFORMATION
  Report Type: 
  Country: None (occurrence: None)
  Receive Date: 20041130
  Receipt Date: 20040727
  Transmission Date: 20050328
  Serious: Yes (Other)
  Sender: FDA-Public Use
  Company Number: US-BRISTOL-MYERS SQUIBB COMPANY-12651907

PATIENT
  Age: 52 Year
  Sex: Male
  Weight: 95 kg

DRUGS (6)
  1. ERBITUX [Suspect]
     Indication: COLORECTAL CANCER METASTATIC
     Dosage: 1ST DOSE 06 MAY 04 (800MG), THEN 500 MG WEEKLY
     Route: 042
     Dates: start: 20040501, end: 20040501
  2. NORVASC [Concomitant]
  3. PAXIL [Concomitant]
  4. GLUCOVANCE [Concomitant]
  5. DARVOCET [Concomitant]
  6. ATIVAN [Concomitant]

REACTIONS (2)
  - DERMATITIS ACNEIFORM [None]
  - RASH VESICULAR [None]
